FAERS Safety Report 10170623 (Version 3)
Quarter: 2014Q3

REPORT INFORMATION
  Report Type: Spontaneous
  Country: US (occurrence: US)
  Receive Date: 20140514
  Receipt Date: 20140707
  Transmission Date: 20150326
  Serious: Yes (Hospitalization)
  Sender: FDA-Public Use
  Company Number: 2014SP002528

PATIENT
  Age: 75 Year
  Sex: Female

DRUGS (26)
  1. NEXAVAR [Suspect]
     Active Substance: SORAFENIB
     Route: 048
  2. HYDROMORPHONE [Concomitant]
     Active Substance: HYDROMORPHONE
  3. DULERA [Concomitant]
     Active Substance: FORMOTEROL FUMARATE DIHYDRATE\MOMETASONE FUROATE
  4. GAS-X [Concomitant]
     Active Substance: DIMETHICONE
  5. UREA. [Concomitant]
     Active Substance: UREA
  6. VANCOMYCIN [Concomitant]
     Active Substance: VANCOMYCIN
  7. ALBUTEROL /00139502/ [Concomitant]
  8. AZELASTINE [Concomitant]
     Active Substance: AZELASTINE
  9. BUDESONIDE. [Concomitant]
     Active Substance: BUDESONIDE
  10. CARAFATE [Concomitant]
     Active Substance: SUCRALFATE
  11. ENOXAPARIN [Concomitant]
     Active Substance: ENOXAPARIN
  12. LOPERAMIDE HYDROCHLORIDE. [Concomitant]
     Active Substance: LOPERAMIDE HYDROCHLORIDE
  13. TRAVATAN Z [Concomitant]
     Active Substance: TRAVOPROST
  14. URSODIOL. [Concomitant]
     Active Substance: URSODIOL
  15. DOXORUBICIN [Suspect]
     Active Substance: DOXORUBICIN
     Indication: PRODUCT USED FOR UNKNOWN INDICATION
  16. CALCIUM PLUS VITAMIN D3 [Concomitant]
  17. HYDROCHLOROTHIAZIDE. [Concomitant]
     Active Substance: HYDROCHLOROTHIAZIDE
  18. HYDROXYZINE HCL [Concomitant]
     Active Substance: HYDROXYZINE HYDROCHLORIDE
  19. VITAMINS NOS [Concomitant]
     Active Substance: VITAMINS
  20. ALPRAZOLAM. [Concomitant]
     Active Substance: ALPRAZOLAM
  21. AVAPRO [Concomitant]
     Active Substance: IRBESARTAN
  22. FLUTICASONE PROPIONATE. [Concomitant]
     Active Substance: FLUTICASONE PROPIONATE
  23. PANTOPRAZOLE [Concomitant]
     Active Substance: PANTOPRAZOLE SODIUM
  24. NITROSTAT [Concomitant]
     Active Substance: NITROGLYCERIN
  25. TEMAZEPAM. [Concomitant]
     Active Substance: TEMAZEPAM
  26. WARFARIN [Concomitant]
     Active Substance: WARFARIN

REACTIONS (8)
  - Diarrhoea [Unknown]
  - Dumping syndrome [Unknown]
  - Hypertension [Unknown]
  - Irritable bowel syndrome [Unknown]
  - Weight decreased [Unknown]
  - Biliary cirrhosis primary [Unknown]
  - Fatigue [Unknown]
  - Stomatitis [Unknown]
